FAERS Safety Report 19212802 (Version 1)
Quarter: 2021Q2

REPORT INFORMATION
  Report Type: Spontaneous
  Country: RO (occurrence: RO)
  Receive Date: 20210504
  Receipt Date: 20210504
  Transmission Date: 20210717
  Serious: Yes (Hospitalization)
  Sender: FDA-Public Use
  Company Number: RO-JNJFOC-20210418154

PATIENT
  Age: 77 Year
  Sex: Female

DRUGS (15)
  1. XARELTO [Suspect]
     Active Substance: RIVAROXABAN
     Indication: ATRIAL FIBRILLATION
     Dosage: 15 MG, QD
     Route: 048
     Dates: start: 20180213, end: 202103
  2. ALTRIFER LDS [Concomitant]
  3. SORBIFER [FERROUS SULFATE] [Concomitant]
     Active Substance: FERROUS SULFATE
  4. SPIRONOLACTONE. [Concomitant]
     Active Substance: SPIRONOLACTONE
  5. VITAMIN B6 [Concomitant]
     Active Substance: PYRIDOXINE HYDROCHLORIDE
  6. TRITTICO [Concomitant]
     Active Substance: TRAZODONE HYDROCHLORIDE
  7. FOLIC ACID. [Concomitant]
     Active Substance: FOLIC ACID
  8. NITROMINT [Concomitant]
     Active Substance: NITROGLYCERIN
  9. DIGOXIN. [Concomitant]
     Active Substance: DIGOXIN
  10. FUROSEMID [FUROSEMIDE] [Concomitant]
     Active Substance: FUROSEMIDE
  11. CARVEDILOL. [Concomitant]
     Active Substance: CARVEDILOL
  12. XARELTO [Suspect]
     Active Substance: RIVAROXABAN
     Indication: CONGESTIVE CARDIOMYOPATHY
     Dosage: 15 UNK
     Route: 048
  13. NEXIUM I.V. [Concomitant]
     Active Substance: ESOMEPRAZOLE SODIUM
  14. VITAMIN B NOS [Concomitant]
     Active Substance: VITAMIN B
  15. CIPRALEX [Concomitant]
     Active Substance: ESCITALOPRAM OXALATE

REACTIONS (2)
  - Melaena [Unknown]
  - Anaemia [Unknown]

NARRATIVE: CASE EVENT DATE: 20210304
